FAERS Safety Report 5875731-7 (Version None)
Quarter: 2008Q3

REPORT INFORMATION
  Report Type: 
  Country: None (occurrence: None)
  Receive Date: 20080905
  Receipt Date: 20080827
  Transmission Date: 20090109
  Serious: Yes (Hospitalization, Other)
  Sender: FDA-Public Use
  Company Number: POMP-1000269

PATIENT
  Age: 8 Month
  Sex: Male
  Weight: 9.1 kg

DRUGS (13)
  1. MYOZYME [Suspect]
     Indication: GLYCOGEN STORAGE DISEASE TYPE II
     Dosage: 20 MG/KG, Q2W, INTRAVENOUS
     Route: 042
     Dates: start: 20080415
  2. RANITIDINE [Concomitant]
  3. PREDNISONE [Concomitant]
  4. CETIRIZINE HCL [Concomitant]
  5. XOPENEX [Concomitant]
  6. PULMICORT [Concomitant]
  7. IPRATROPIUM BR (IPRATROPIUM BROMIDE) [Concomitant]
  8. METOCLOPRAMIDE [Concomitant]
  9. FLUCONAZOLE [Concomitant]
  10. BISACODYL (BISACODYL) [Concomitant]
  11. MIRALAX [Concomitant]
  12. ZYRTEC-D 12HR (CETIRIZINE HYDROCHLORIDE, PSEUDOEPHEDRINE HYDROCHLORIDE [Concomitant]
  13. BENADRYL [Concomitant]

REACTIONS (15)
  - AGITATION [None]
  - BLOOD IMMUNOGLOBULIN G INCREASED [None]
  - BLOOD PRESSURE DECREASED [None]
  - CRYING [None]
  - HYPERHIDROSIS [None]
  - INFUSION RELATED REACTION [None]
  - NASAL CONGESTION [None]
  - OXYGEN SATURATION DECREASED [None]
  - PALLOR [None]
  - PETECHIAE [None]
  - RASH [None]
  - RESPIRATORY DISTRESS [None]
  - RETCHING [None]
  - TACHYCARDIA [None]
  - VOMITING [None]
